FAERS Safety Report 7706677-7 (Version None)
Quarter: 2011Q3

REPORT INFORMATION
  Report Type: 
  Country: None (occurrence: None)
  Receive Date: 20110824
  Receipt Date: 20110721
  Transmission Date: 20111222
  Serious: No
  Sender: FDA-Public Use
  Company Number: US-GLAXOSMITHKLINE-A0937573A

PATIENT
  Age: 59 Year
  Sex: Female

DRUGS (14)
  1. ATIVAN [Concomitant]
  2. ACYCLOVIR [Concomitant]
  3. VICODIN [Concomitant]
  4. ARZERRA [Suspect]
     Indication: CHRONIC LYMPHOCYTIC LEUKAEMIA
     Route: 042
     Dates: start: 20110629, end: 20110713
  5. NEXIUM [Concomitant]
  6. TYLENOL-500 [Concomitant]
  7. CALCIUM SUPPLEMENT [Concomitant]
  8. SOLU-MEDROL [Concomitant]
  9. LISINOPRIL [Concomitant]
  10. BENADRYL [Concomitant]
  11. ZOFRAN [Concomitant]
  12. ALLOPURINOL [Concomitant]
  13. POTASSIUM CHLORIDE [Concomitant]
  14. INSULIN [Concomitant]

REACTIONS (2)
  - DYSPNOEA [None]
  - ANXIETY [None]
